FAERS Safety Report 4443046-X (Version None)
Quarter: 2004Q3

REPORT INFORMATION
  Report Type: 
  Country: None (occurrence: None)
  Receive Date: 20040903
  Receipt Date: 20040528
  Transmission Date: 20050211
  Serious: Yes (Other)
  Sender: FDA-Public Use
  Company Number: 2004UW11195

PATIENT
  Sex: Female

DRUGS (4)
  1. CRESTOR [Suspect]
  2. VASOTEC [Concomitant]
  3. AVANDIA [Concomitant]
  4. MULTIVITAMIN [Concomitant]

REACTIONS (2)
  - ASTHENIA [None]
  - TREMOR [None]
